FAERS Safety Report 23526143 (Version 3)
Quarter: 2024Q1

REPORT INFORMATION
  Report Type: Spontaneous
  Country: US (occurrence: None)
  Receive Date: 20240215
  Receipt Date: 20240314
  Transmission Date: 20240409
  Serious: Yes (Hospitalization)
  Sender: FDA-Public Use
  Company Number: US-ROCHE-3507855

PATIENT
  Age: 36 Year
  Sex: Male
  Weight: 110.1 kg

DRUGS (13)
  1. HEMLIBRA [Suspect]
     Active Substance: EMICIZUMAB-KXWH
     Indication: Factor VIII deficiency
     Dosage: 3 MG/KG WEEKLY X 4, THEN CONTINUED MAINTENANCE 1.5 MG/KG WEEKLY. NO CONCERNS WITH ADHERENCE
     Route: 058
     Dates: start: 20221201
  2. TYLENOL [Concomitant]
     Active Substance: ACETAMINOPHEN
     Indication: Pain
     Route: 048
     Dates: start: 20231227
  3. TYLENOL [Concomitant]
     Active Substance: ACETAMINOPHEN
     Route: 048
  4. ACETAMINOPHEN\CODEINE PHOSPHATE [Concomitant]
     Active Substance: ACETAMINOPHEN\CODEINE PHOSPHATE
     Indication: Pain
     Dosage: 300-30 MG TABLET
     Route: 048
     Dates: start: 20240219
  5. ADVATE [Concomitant]
     Active Substance: ANTIHEMOPHILIC FACTOR, HUMAN RECOMBINANT
     Indication: Haemorrhage
     Dosage: 2500 UNITS
     Route: 048
     Dates: start: 20221208
  6. CELEBREX [Concomitant]
     Active Substance: CELECOXIB
     Indication: Pain
     Route: 048
     Dates: start: 20230816, end: 20240226
  7. CELEBREX [Concomitant]
     Active Substance: CELECOXIB
     Route: 048
  8. METHOCARBAMOL [Concomitant]
     Active Substance: METHOCARBAMOL
     Indication: Muscle spasms
     Route: 048
     Dates: start: 20240219
  9. ONDANSETRON [Concomitant]
     Active Substance: ONDANSETRON
     Route: 048
     Dates: start: 20240219
  10. SCOPOLAMINE [Concomitant]
     Active Substance: SCOPOLAMINE
     Route: 062
     Dates: start: 20240222
  11. LYSTEDA [Concomitant]
     Active Substance: TRANEXAMIC ACID
     Indication: Epistaxis
     Route: 048
     Dates: start: 20231227
  12. LYSTEDA [Concomitant]
     Active Substance: TRANEXAMIC ACID
     Route: 048
  13. ACETAMINOPHEN [Concomitant]
     Active Substance: ACETAMINOPHEN
     Route: 048

REACTIONS (1)
  - Subdural haematoma [Not Recovered/Not Resolved]

NARRATIVE: CASE EVENT DATE: 20240207
